FAERS Safety Report 6607147-X (Version None)
Quarter: 2010Q1

REPORT INFORMATION
  Report Type: 
  Country: None (occurrence: None)
  Receive Date: 20100212
  Receipt Date: 20091014
  Transmission Date: 20100710
  Serious: No
  Sender: FDA-Public Use
  Company Number: 1000009513

PATIENT
  Sex: Female

DRUGS (4)
  1. SAVELLA [Suspect]
     Dosage: 12.5 (12.5 MG, 1 IN 1 D); 25 (12.5 MG, 2 IN 1 D); 50 (25 MG 2 IN 1 D); 100 (50 MG, 2 IN 1 D) MG ORAL
     Route: 048
     Dates: start: 20090901, end: 20090901
  2. SAVELLA [Suspect]
     Dosage: 12.5 (12.5 MG, 1 IN 1 D); 25 (12.5 MG, 2 IN 1 D); 50 (25 MG 2 IN 1 D); 100 (50 MG, 2 IN 1 D) MG ORAL
     Route: 048
     Dates: start: 20090901, end: 20090901
  3. SAVELLA [Suspect]
     Dosage: 12.5 (12.5 MG, 1 IN 1 D); 25 (12.5 MG, 2 IN 1 D); 50 (25 MG 2 IN 1 D); 100 (50 MG, 2 IN 1 D) MG ORAL
     Route: 048
     Dates: start: 20090901, end: 20090901
  4. SAVELLA [Suspect]
     Dosage: 12.5 (12.5 MG, 1 IN 1 D); 25 (12.5 MG, 2 IN 1 D); 50 (25 MG 2 IN 1 D); 100 (50 MG, 2 IN 1 D) MG ORAL
     Route: 048
     Dates: start: 20090901

REACTIONS (3)
  - HYPERTENSION [None]
  - IRRITABILITY [None]
  - PALPITATIONS [None]
